FAERS Safety Report 7201672-9 (Version None)
Quarter: 2010Q4

REPORT INFORMATION
  Report Type: 
  Country: None (occurrence: None)
  Receive Date: 20101229
  Receipt Date: 20101220
  Transmission Date: 20110411
  Serious: Yes (Other)
  Sender: FDA-Public Use
  Company Number: JP-ROCHE-744528

PATIENT
  Sex: Female
  Weight: 41 kg

DRUGS (15)
  1. AVASTIN [Suspect]
     Indication: LUNG ADENOCARCINOMA METASTATIC
     Dosage: ACTION TAKEN: DISCONTINUED
     Route: 041
     Dates: start: 20100511, end: 20100803
  2. ZOMETA [Suspect]
     Indication: METASTASES TO BONE
     Route: 041
     Dates: start: 20100519, end: 20100810
  3. CISPLATIN [Suspect]
     Indication: LUNG ADENOCARCINOMA METASTATIC
     Route: 041
     Dates: start: 20100511, end: 20100713
  4. GEMZAR [Suspect]
     Indication: LUNG ADENOCARCINOMA METASTATIC
     Route: 041
     Dates: start: 20100511, end: 20100518
  5. GEMZAR [Suspect]
     Route: 041
     Dates: start: 20100601, end: 20100713
  6. KYTRIL [Concomitant]
     Route: 042
     Dates: start: 20100511, end: 20100715
  7. DECADRON [Concomitant]
     Route: 042
     Dates: start: 20100511, end: 20100511
  8. DECADRON [Concomitant]
     Route: 042
     Dates: start: 20100512, end: 20100713
  9. DECADRON [Concomitant]
     Route: 042
     Dates: start: 20100714, end: 20100715
  10. MANNITOL [Concomitant]
     Route: 042
     Dates: start: 20100511, end: 20100713
  11. PURSENNID [Concomitant]
     Route: 048
     Dates: start: 20100604, end: 20100802
  12. RHYTHMY [Concomitant]
     Route: 048
     Dates: start: 20100512, end: 20100729
  13. UNSPECIFIED DRUG [Concomitant]
     Route: 048
     Dates: start: 20100511, end: 20100511
  14. UNSPECIFIED DRUG [Concomitant]
     Route: 048
     Dates: start: 20100512, end: 20100713
  15. UNSPECIFIED DRUG [Concomitant]
     Route: 048
     Dates: start: 20100714, end: 20100715

REACTIONS (4)
  - BLOOD CREATININE INCREASED [None]
  - CONSTIPATION [None]
  - PROTEIN URINE [None]
  - TUBULOINTERSTITIAL NEPHRITIS [None]
